FAERS Safety Report 5845221-6 (Version None)
Quarter: 2008Q3

REPORT INFORMATION
  Report Type: 
  Country: None (occurrence: None)
  Receive Date: 20080814
  Receipt Date: 20080805
  Transmission Date: 20090109
  Serious: Yes (Other)
  Sender: FDA-Public Use
  Company Number: A0742540A

PATIENT
  Age: 60 Year
  Sex: Female

DRUGS (6)
  1. AVANDAMET [Suspect]
     Route: 048
     Dates: start: 20070726, end: 20070729
  2. ACARBOSE [Suspect]
     Dosage: 100MG PER DAY
     Route: 048
     Dates: start: 20070628, end: 20070726
  3. GLIMEPIRIDE [Suspect]
     Dosage: 6MG PER DAY
     Route: 048
     Dates: start: 20030101, end: 20070729
  4. METFORMIN HCL [Concomitant]
     Route: 048
  5. BIPRETERAX [Concomitant]
     Route: 048
     Dates: start: 20030101
  6. SIMVASTATIN [Concomitant]
     Route: 048
     Dates: start: 20030101

REACTIONS (5)
  - ADVERSE EVENT [None]
  - HEPATIC STEATOSIS [None]
  - HEPATITIS ACUTE [None]
  - PANCREATIC DISORDER [None]
  - PANCREATITIS [None]
